FAERS Safety Report 5727612-7 (Version None)
Quarter: 2008Q2

REPORT INFORMATION
  Report Type: 
  Country: None (occurrence: None)
  Receive Date: 20080505
  Receipt Date: 20080422
  Transmission Date: 20081010
  Serious: Yes (Disabling)
  Sender: FDA-Public Use
  Company Number: FR-GENENTECH-260258

PATIENT
  Sex: Female

DRUGS (14)
  1. HERCEPTIN [Suspect]
     Indication: BREAST CANCER
     Dosage: 340 G, UNK
     Route: 042
     Dates: start: 20070515, end: 20071030
  2. GLUCOSE [Suspect]
     Indication: PREMEDICATION
  3. POTASSIUM CHLORIDE [Suspect]
     Indication: PREMEDICATION
  4. SODIUM CHLORIDE [Suspect]
     Indication: PREMEDICATION
  5. SOLU-MEDROL [Suspect]
     Indication: PREMEDICATION
  6. PRIMPERAN TAB [Suspect]
     Indication: PREMEDICATION
  7. ZOPHREN [Suspect]
     Indication: PREMEDICATION
  8. CARDIOXANE [Suspect]
     Indication: BREAST CANCER
     Dosage: 850 MG, UNK
     Route: 042
     Dates: start: 20061002, end: 20070123
  9. FARMARUBICINE [Suspect]
     Dosage: 85 MG, UNK
     Route: 042
     Dates: start: 20061002, end: 20070123
  10. TAXOTERE [Suspect]
     Indication: BREAST CANCER
     Dosage: 125 MG, UNK
     Route: 042
     Dates: start: 20061002, end: 20070123
  11. TAMOXIFEN CITRATE [Suspect]
     Indication: HORMONE REPLACEMENT THERAPY
     Route: 048
     Dates: start: 20070527
  12. POLARAMINE [Suspect]
     Indication: PREMEDICATION
  13. ENDOXAN [Suspect]
     Indication: BREAST CANCER
     Dosage: 850 MG, UNK
     Route: 042
     Dates: start: 20061002, end: 20070123
  14. NEULASTA [Suspect]
     Indication: PROPHYLAXIS
     Route: 058

REACTIONS (1)
  - HYPOTHYROIDISM [None]
